FAERS Safety Report 4777330-7 (Version None)
Quarter: 2005Q3

REPORT INFORMATION
  Report Type: 
  Country: None (occurrence: None)
  Receive Date: 20050915
  Receipt Date: 20020311
  Transmission Date: 20060218
  Serious: No
  Sender: FDA-Public Use
  Company Number: ROC2002-054

PATIENT
  Age: 73 Year
  Sex: Male

DRUGS (1)
  1. ROCURONIUM [Suspect]
     Dates: start: 20000427

REACTIONS (2)
  - HYPOTENSION [None]
  - SYNCOPE [None]
